FAERS Safety Report 10992212 (Version 2)
Quarter: 2015Q2

REPORT INFORMATION
  Report Type: Spontaneous
  Country: US (occurrence: US)
  Receive Date: 20150406
  Receipt Date: 20150525
  Transmission Date: 20150821
  Serious: Yes (Other)
  Sender: FDA-Public Use
  Company Number: US-JNJFOC-20141106422

PATIENT
  Age: 50 Year
  Sex: Male
  Weight: 93.44 kg

DRUGS (21)
  1. WARFARIN [Concomitant]
     Active Substance: WARFARIN
     Route: 065
  2. LASIX [Concomitant]
     Active Substance: FUROSEMIDE
     Indication: OEDEMA
     Route: 065
  3. WARFARIN SODIUM. [Concomitant]
     Active Substance: WARFARIN SODIUM
     Route: 048
  4. AUGMENTIN (AMOXICILLIN/CLAVULANIC ACID) [Concomitant]
     Route: 065
  5. REMICADE [Suspect]
     Active Substance: INFLIXIMAB
     Indication: ANKYLOSING SPONDYLITIS
     Route: 042
     Dates: start: 20140611
  6. CELEBREX [Concomitant]
     Active Substance: CELECOXIB
     Route: 048
  7. NYSTATIN. [Concomitant]
     Active Substance: NYSTATIN
     Dosage: 100,000 UNITS, CREME APPLY TO AFFECTED AREA TWICE DAILY.
     Route: 065
  8. CLINDAMYCIN HCL [Concomitant]
     Active Substance: CLINDAMYCIN HYDROCHLORIDE
     Route: 065
  9. REMICADE [Suspect]
     Active Substance: INFLIXIMAB
     Indication: RHEUMATOID ARTHRITIS
     Route: 042
     Dates: start: 20140904, end: 20141106
  10. REMICADE [Suspect]
     Active Substance: INFLIXIMAB
     Indication: RHEUMATOID ARTHRITIS
     Route: 042
     Dates: start: 20140611
  11. CELLCEPT [Concomitant]
     Active Substance: MYCOPHENOLATE MOFETIL\MYCOPHENOLATE MOFETIL HYDROCHLORIDE
     Route: 065
  12. TIKOSYN [Concomitant]
     Active Substance: DOFETILIDE
     Route: 065
  13. REMICADE [Suspect]
     Active Substance: INFLIXIMAB
     Indication: ANKYLOSING SPONDYLITIS
     Route: 042
     Dates: start: 20140904, end: 20141106
  14. LISINOPRIL. [Concomitant]
     Active Substance: LISINOPRIL
     Route: 065
  15. COREG [Concomitant]
     Active Substance: CARVEDILOL
     Route: 065
  16. LASIX [Concomitant]
     Active Substance: FUROSEMIDE
     Indication: WEIGHT INCREASED
     Route: 065
  17. LIDOCAINE. [Concomitant]
     Active Substance: LIDOCAINE
     Dosage: 5%
     Route: 065
  18. OXYCODONE HCL [Concomitant]
     Active Substance: OXYCODONE HYDROCHLORIDE
     Dosage: 1 TABLET EVERY 3-4 HOURS
     Route: 065
  19. COLLAGENASE SANTYL [Concomitant]
     Active Substance: COLLAGENASE CLOSTRIDIUM HISTOLYTICUM
     Route: 065
  20. CLOTRIMAZOLE AND BETAMETHASONE [Concomitant]
     Dosage: 1.0.05% CREAM APPLY AFFECTED AREAS
     Route: 065
  21. CLOBETASOL PROPIONATE CREAM [Concomitant]
     Active Substance: CLOBETASOL PROPIONATE
     Dosage: 0.05 % , 1 APPLICATION TO KNEE
     Route: 065

REACTIONS (1)
  - Cellulitis [Not Recovered/Not Resolved]

NARRATIVE: CASE EVENT DATE: 20141106
